FAERS Safety Report 13058634 (Version 1)
Quarter: 2016Q4

REPORT INFORMATION
  Report Type: Spontaneous
  Country: US (occurrence: US)
  Receive Date: 20161223
  Receipt Date: 20161223
  Transmission Date: 20170207
  Serious: Yes (Other)
  Sender: FDA-Public Use
  Company Number: None

PATIENT
  Age: 27 Year
  Sex: Female
  Weight: 60.75 kg

DRUGS (4)
  1. TYLENOL [Concomitant]
     Active Substance: ACETAMINOPHEN
  2. BIRTH CONTROL [Concomitant]
     Active Substance: UNSPECIFIED INGREDIENT
  3. ICY HOT WITH LIDOCAINE PAIN RELIEVING [Suspect]
     Active Substance: LIDOCAINE\MENTHOL
     Indication: BACK PAIN
     Dosage: ?          QUANTITY:.25 TEASPOON(S);?
     Route: 061
  4. VITAMIN E [Concomitant]
     Active Substance: .ALPHA.-TOCOPHEROL

REACTIONS (2)
  - Application site burn [None]
  - Chemical injury [None]

NARRATIVE: CASE EVENT DATE: 20161111
